FAERS Safety Report 6840668-3 (Version None)
Quarter: 2010Q3

REPORT INFORMATION
  Report Type: 
  Country: None (occurrence: None)
  Receive Date: 20100713
  Receipt Date: 20100713
  Transmission Date: 20110219
  Serious: Yes (Hospitalization)
  Sender: FDA-Public Use
  Company Number: None

PATIENT
  Age: 59 Year
  Sex: Male

DRUGS (2)
  1. RITUXAN [Suspect]
     Indication: CHRONIC LYMPHOCYTIC LEUKAEMIA
     Dosage: 700 MG IV
     Route: 042
     Dates: start: 20100712
  2. RITUXAN [Suspect]

REACTIONS (3)
  - BODY TEMPERATURE INCREASED [None]
  - MYALGIA [None]
  - PAIN [None]
